FAERS Safety Report 11045907 (Version 1)
Quarter: 2015Q2

REPORT INFORMATION
  Report Type: Report from Study
  Country: CA (occurrence: CA)
  Receive Date: 20150417
  Receipt Date: 20150417
  Transmission Date: 20150821
  Serious: Yes (Other)
  Sender: FDA-Public Use
  Company Number: CA-GILEAD-2015-0136804

PATIENT
  Age: 50 Year
  Sex: Female

DRUGS (2)
  1. SOFOSBUVIR [Suspect]
     Active Substance: SOFOSBUVIR
     Indication: HEPATITIS C
     Dosage: 400 MG, UNK
     Route: 065
     Dates: start: 20150202, end: 20150206
  2. IBAVYR [Suspect]
     Active Substance: RIBAVIRIN
     Indication: HEPATITIS C
     Dosage: 1200 MG, QD
     Route: 065
     Dates: start: 20150202, end: 20150206

REACTIONS (10)
  - Asthenia [Unknown]
  - Initial insomnia [Recovered/Resolved]
  - Dysuria [Unknown]
  - Headache [Recovered/Resolved]
  - Nephrolithiasis [Unknown]
  - Product quality issue [Unknown]
  - Myalgia [Unknown]
  - Dyspnoea exertional [Unknown]
  - Fatigue [Recovered/Resolved]
  - Sleep disorder [Unknown]

NARRATIVE: CASE EVENT DATE: 201502
